FAERS Safety Report 8433374-5 (Version None)
Quarter: 2012Q2

REPORT INFORMATION
  Report Type: 
  Country: None (occurrence: None)
  Receive Date: 20120613
  Receipt Date: 20120608
  Transmission Date: 20120825
  Serious: Yes (Hospitalization, Disabling)
  Sender: FDA-Public Use
  Company Number: US-MERCK-1107USA01811

PATIENT
  Age: 60 Year
  Sex: Female

DRUGS (9)
  1. ALENDRONATE SODIUM [Suspect]
     Indication: OSTEOPENIA
     Route: 048
     Dates: start: 20080527, end: 20110218
  2. ZOLOFT [Concomitant]
     Indication: ANXIETY
     Route: 065
     Dates: start: 20050131
  3. VITAMIN D (UNSPECIFIED) [Concomitant]
     Indication: OSTEOPENIA
     Route: 065
  4. ZOLOFT [Concomitant]
     Indication: MENOPAUSE
     Route: 065
     Dates: start: 20050131
  5. CALCIUM (UNSPECIFIED) [Concomitant]
     Indication: OSTEOPENIA
     Route: 065
  6. FOSAMAX [Suspect]
     Indication: OSTEOPENIA
     Route: 048
     Dates: start: 20060123, end: 20080527
  7. ALLEGRA [Concomitant]
     Indication: SEASONAL ALLERGY
     Route: 065
  8. ZOCOR [Concomitant]
     Route: 048
     Dates: start: 20070101
  9. AMITRIPTYLINE HYDROCHLORIDE [Concomitant]
     Indication: INSOMNIA
     Route: 048
     Dates: start: 20051103

REACTIONS (7)
  - INSOMNIA [None]
  - DEPRESSION [None]
  - GALLBLADDER DISORDER [None]
  - ANXIETY [None]
  - BLOOD CHOLESTEROL INCREASED [None]
  - FEMUR FRACTURE [None]
  - TOOTH DISORDER [None]
